FAERS Safety Report 4744439-3 (Version None)
Quarter: 2005Q3

REPORT INFORMATION
  Report Type: 
  Country: None (occurrence: None)
  Receive Date: 20050809
  Receipt Date: 20050729
  Transmission Date: 20060218
  Serious: Yes (Hospitalization, Other)
  Sender: FDA-Public Use
  Company Number: 2005079867

PATIENT
  Age: 51 Year
  Sex: Female

DRUGS (8)
  1. NEURONTIN [Suspect]
     Indication: PAIN
     Dosage: 1800 MG (600 MG, 3 IN 1 D), ORAL
     Route: 048
     Dates: start: 20040112, end: 20050603
  2. ZOLOFT [Concomitant]
  3. METFORMIN HCL [Concomitant]
  4. NEXIUM [Concomitant]
  5. ABILIFY [Concomitant]
  6. WELLBUTRIN (BUPROPRION HYDROCHLORIDE) [Concomitant]
  7. LOPRESSOR [Concomitant]
  8. ZOCOR [Concomitant]

REACTIONS (10)
  - CEREBROVASCULAR DISORDER [None]
  - CHEST PAIN [None]
  - DRUG INEFFECTIVE [None]
  - DYSPHEMIA [None]
  - DYSPNOEA [None]
  - FATIGUE [None]
  - HEADACHE [None]
  - HYPOAESTHESIA [None]
  - MUSCLE TWITCHING [None]
  - WEIGHT DECREASED [None]
